FAERS Safety Report 20128405 (Version 4)
Quarter: 2022Q3

REPORT INFORMATION
  Report Type: Spontaneous
  Country: US (occurrence: US)
  Receive Date: 20211130
  Receipt Date: 20220701
  Transmission Date: 20221027
  Serious: No
  Sender: FDA-Public Use
  Company Number: US-LUPIN PHARMACEUTICALS INC.-2021-23172

PATIENT
  Sex: Female

DRUGS (1)
  1. ALBUTEROL SULFATE [Suspect]
     Active Substance: ALBUTEROL SULFATE
     Indication: Wheezing
     Dosage: UNK, QID (2 PUFFS, ONCE IN EVERY 6 HOURS ))
     Dates: start: 20211104

REACTIONS (5)
  - Dyspnoea [Unknown]
  - Device occlusion [Unknown]
  - Device leakage [Unknown]
  - Product preparation error [Unknown]
  - Device delivery system issue [Unknown]
